FAERS Safety Report 18140100 (Version 1)
Quarter: 2020Q3

REPORT INFORMATION
  Report Type: Spontaneous
  Country: FR (occurrence: FR)
  Receive Date: 20200812
  Receipt Date: 20200812
  Transmission Date: 20201103
  Serious: Yes (Other)
  Sender: FDA-Public Use
  Company Number: FR-MYLANLABS-2020M1069993

PATIENT
  Sex: Male

DRUGS (1)
  1. BUPRENORPHINE. [Suspect]
     Active Substance: BUPRENORPHINE
     Indication: PRODUCT USED FOR UNKNOWN INDICATION
     Dosage: 3?4 MG
     Route: 065

REACTIONS (5)
  - Somnolence [Unknown]
  - Drug withdrawal syndrome [Unknown]
  - Drug diversion [Unknown]
  - Substance abuse [Unknown]
  - Euphoric mood [Unknown]
